FAERS Safety Report 24724842 (Version 1)
Quarter: 2024Q4

REPORT INFORMATION
  Report Type: Spontaneous
  Country: US (occurrence: US)
  Receive Date: 20241212
  Receipt Date: 20241212
  Transmission Date: 20250115
  Serious: No
  Sender: EPIC PHARM
  Company Number: US-EPICPHARMA-US-2024EPCSPO01525

PATIENT
  Sex: Female

DRUGS (1)
  1. DEXTROAMPHETAMINE SACCHARATE, AMPHETAMINE ASPARTATE, DEXTROAMPHETAMINE [Suspect]
     Active Substance: AMPHETAMINE ASPARTATE\AMPHETAMINE SULFATE\DEXTROAMPHETAMINE SACCHARATE\DEXTROAMPHETAMINE SULFATE
     Indication: Product used for unknown indication
     Route: 065

REACTIONS (8)
  - Lethargy [Unknown]
  - Brain fog [Unknown]
  - General physical condition abnormal [Unknown]
  - Anxiety [Unknown]
  - Weight increased [Unknown]
  - Depression [Unknown]
  - Therapeutic response changed [Unknown]
  - Product substitution issue [Unknown]
